FAERS Safety Report 8447542-X (Version None)
Quarter: 2012Q2

REPORT INFORMATION
  Report Type: 
  Country: None (occurrence: None)
  Receive Date: 20120613
  Receipt Date: 20120613
  Transmission Date: 20120825
  Serious: Yes (Hospitalization)
  Sender: FDA-Public Use
  Company Number: None

PATIENT
  Age: 53 Year
  Sex: Female
  Weight: 86.3 kg

DRUGS (1)
  1. NAPROXEN [Suspect]
     Dates: start: 20111223

REACTIONS (1)
  - GASTRIC HAEMORRHAGE [None]
